FAERS Safety Report 19086139 (Version 1)
Quarter: 2021Q2

REPORT INFORMATION
  Report Type: Spontaneous
  Country: US (occurrence: US)
  Receive Date: 20210402
  Receipt Date: 20210402
  Transmission Date: 20210717
  Serious: No
  Sender: FDA-Public Use
  Company Number: US-ALLERGAN-2025991US

PATIENT
  Sex: Female

DRUGS (1)
  1. OXYTROL [Suspect]
     Active Substance: OXYBUTYNIN
     Indication: PRODUCT USED FOR UNKNOWN INDICATION
     Dosage: 3.9 MG
     Route: 062

REACTIONS (4)
  - Application site erythema [Not Recovered/Not Resolved]
  - Drug ineffective [Unknown]
  - Skin exfoliation [Not Recovered/Not Resolved]
  - Device adhesion issue [Unknown]
